FAERS Safety Report 20805032 (Version 1)
Quarter: 2022Q2

REPORT INFORMATION
  Report Type: Spontaneous
  Country: US (occurrence: US)
  Receive Date: 20220509
  Receipt Date: 20220509
  Transmission Date: 20220721
  Serious: No
  Sender: FDA-Public Use
  Company Number: US-PFIZER INC-202200156795

PATIENT
  Age: 75 Year
  Sex: Male
  Weight: 77.11 kg

DRUGS (1)
  1. CAVERJECT [Suspect]
     Active Substance: ALPROSTADIL
     Dosage: 40 MG

REACTIONS (2)
  - Expired product administered [Unknown]
  - Pain [Unknown]
